FAERS Safety Report 8838324 (Version 2)
Quarter: 2012Q4

REPORT INFORMATION
  Report Type: 
  Country: MX (occurrence: MX)
  Receive Date: 20121012
  Receipt Date: 20121030
  Transmission Date: 20130627
  Serious: Yes (Other)
  Sender: FDA-Public Use
  Company Number: MX-GLAXOSMITHKLINE-A0997033A

PATIENT
  Age: 65 Year
  Sex: Male

DRUGS (4)
  1. AROPAX [Suspect]
     Indication: DEPRESSION
     Dosage: 20MG Per day
     Route: 048
     Dates: start: 201206
  2. TRILEPTAL [Concomitant]
     Indication: CONVULSION PROPHYLAXIS
     Dosage: 2TAB per day
     Route: 065
  3. METOPROLOL [Concomitant]
     Indication: CARDIAC DISORDER
     Dosage: 1TAB Per day
  4. MICARDIS [Concomitant]
     Indication: HYPERTENSION
     Dosage: 2TAB per day

REACTIONS (3)
  - Drug ineffective [Not Recovered/Not Resolved]
  - Adverse event [Not Recovered/Not Resolved]
  - Depression [Not Recovered/Not Resolved]
